FAERS Safety Report 5898213-5 (Version None)
Quarter: 2008Q3

REPORT INFORMATION
  Report Type: 
  Country: None (occurrence: None)
  Receive Date: 20080911
  Receipt Date: 20080428
  Transmission Date: 20090109
  Serious: Yes (Hospitalization)
  Sender: FDA-Public Use
  Company Number: 2008-0015647

PATIENT
  Age: 30 Year
  Sex: Male

DRUGS (5)
  1. ATRIPLA [Suspect]
     Indication: HIV INFECTION
     Dosage: 1 DOSAGE FORMS, 1 IN 1 D, ORAL
     Route: 048
     Dates: start: 20080201, end: 20080228
  2. CHLORHEXIDINE (CHLORHEXIDINE) [Concomitant]
  3. MULTIVITAMIN (MULTIVITAMIN /00831701/) [Concomitant]
  4. PSEUDOEPHEDRINE HCL [Concomitant]
  5. FLUNISOLIDE [Concomitant]

REACTIONS (1)
  - LIVER FUNCTION TEST ABNORMAL [None]
